FAERS Safety Report 7347182-X (Version None)
Quarter: 2011Q1

REPORT INFORMATION
  Report Type: 
  Country: None (occurrence: None)
  Receive Date: 20110311
  Receipt Date: 20110308
  Transmission Date: 20110831
  Serious: Yes (Death)
  Sender: FDA-Public Use
  Company Number: JP-PFIZER INC-2011049440

PATIENT
  Age: 90 Year
  Sex: Male

DRUGS (7)
  1. NOVASTAN [Suspect]
     Dosage: 10 MG, 1X/DAY
     Route: 041
     Dates: start: 20110214, end: 20110214
  2. NOVASTAN [Suspect]
     Dosage: 20 MG, 1X/DAY
     Route: 041
     Dates: start: 20110210, end: 20110210
  3. NOVASTAN [Suspect]
     Dosage: 30 MG, 1X/DAY
     Route: 041
     Dates: start: 20110217, end: 20110217
  4. NOVASTAN [Suspect]
     Dosage: 30 MG, 1X/DAY
     Route: 041
     Dates: start: 20110211, end: 20110211
  5. NOVASTAN [Suspect]
     Dosage: 40 MG, 1X/DAY
     Route: 041
     Dates: start: 20110218, end: 20110218
  6. NOVASTAN [Suspect]
     Indication: HEPARIN-INDUCED THROMBOCYTOPENIA
     Dosage: 40 MG, 1X/DAY
     Route: 041
     Dates: start: 20110204, end: 20110204
  7. NOVASTAN [Suspect]
     Dosage: 50 MG, 1X/DAY
     Route: 041
     Dates: start: 20110205, end: 20110209

REACTIONS (1)
  - PULMONARY ALVEOLAR HAEMORRHAGE [None]
